FAERS Safety Report 10978936 (Version 1)
Quarter: 2015Q2

REPORT INFORMATION
  Report Type: Spontaneous
  Country: US (occurrence: US)
  Receive Date: 20150402
  Receipt Date: 20150402
  Transmission Date: 20150821
  Serious: No
  Sender: FDA-Public Use
  Company Number: US-PFIZER INC-2015109958

PATIENT
  Sex: Male

DRUGS (1)
  1. INLYTA [Suspect]
     Active Substance: AXITINIB
     Indication: BLOOD PRESSURE
     Dosage: UNK

REACTIONS (4)
  - Hypertension [Unknown]
  - Fatigue [Unknown]
  - Product use issue [Unknown]
  - Dysphonia [Unknown]
